FAERS Safety Report 10153512 (Version 2)
Quarter: 2014Q2

REPORT INFORMATION
  Report Type: Spontaneous
  Country: US (occurrence: US)
  Receive Date: 20140505
  Receipt Date: 20140522
  Transmission Date: 20141212
  Serious: Yes (Death, Hospitalization, Other)
  Sender: FDA-Public Use
  Company Number: US-B.I. PHARMACEUTICALS,INC./RIDGEFIELD-2014-BI-19808BP

PATIENT
  Age: 85 Year
  Sex: Male
  Weight: 85.73 kg

DRUGS (9)
  1. PRADAXA [Suspect]
     Indication: ATRIAL FIBRILLATION
     Dosage: 300 MG
     Route: 048
     Dates: start: 201107, end: 201403
  2. LOSARTAN [Concomitant]
     Indication: HYPERTENSION
     Dosage: DOSE PER APPLICATION: 25
     Route: 065
  3. ASPIRIN [Concomitant]
     Indication: CORONARY ARTERY DISEASE
     Dosage: DOSE PER APPLICATION: 81
     Route: 065
  4. SYNTHROID [Concomitant]
     Indication: HYPOTHYROIDISM
     Route: 065
  5. CRESTOR [Concomitant]
     Indication: DYSLIPIDAEMIA
     Route: 065
  6. VITAMIN B12 [Concomitant]
     Route: 065
  7. VITAMIN D [Concomitant]
     Route: 065
  8. UBIQUINOL [Concomitant]
     Route: 065
  9. EYRCAP [Concomitant]
     Route: 065

REACTIONS (4)
  - Haemorrhage [Fatal]
  - Fall [Fatal]
  - Hypotension [Fatal]
  - Multi-organ failure [Fatal]
